FAERS Safety Report 14679674 (Version 1)
Quarter: 2018Q1

REPORT INFORMATION
  Report Type: Spontaneous
  Country: GB (occurrence: GB)
  Receive Date: 20180326
  Receipt Date: 20180326
  Transmission Date: 20180509
  Serious: Yes (Other)
  Sender: FDA-Public Use
  Company Number: GB-AUROBINDO-AUR-APL-2018-010031

PATIENT

DRUGS (3)
  1. TERBINAFINE TABLETS 250 MG [Suspect]
     Active Substance: TERBINAFINE
     Indication: PRODUCT USED FOR UNKNOWN INDICATION
     Dosage: 250 MG, UNK
     Route: 048
  2. CARDIOPLEN XL [Suspect]
     Active Substance: FELODIPINE
     Indication: PRODUCT USED FOR UNKNOWN INDICATION
     Dosage: 5 MG, QD
     Route: 065
  3. FLUCLOX /00239102/ [Suspect]
     Active Substance: FLUCLOXACILLIN
     Indication: COUGH
     Dosage: UNK, TID ()
     Route: 065

REACTIONS (7)
  - Ocular hyperaemia [Unknown]
  - Systemic lupus erythematosus [Unknown]
  - Skin exfoliation [Unknown]
  - Liver function test increased [Unknown]
  - Rash generalised [Unknown]
  - Hepatic steatosis [Unknown]
  - Urticaria [Unknown]
